FAERS Safety Report 13134345 (Version 3)
Quarter: 2017Q2

REPORT INFORMATION
  Report Type: Spontaneous
  Country: US (occurrence: US)
  Receive Date: 20170120
  Receipt Date: 20170411
  Transmission Date: 20170830
  Serious: No
  Sender: FDA-Public Use
  Company Number: US-009507513-1701USA007956

PATIENT
  Age: 17 Year
  Sex: Female
  Weight: 50.34 kg

DRUGS (2)
  1. ALBUTEROL. [Concomitant]
     Active Substance: ALBUTEROL
  2. NEXPLANON [Suspect]
     Active Substance: ETONOGESTREL
     Indication: CONTRACEPTION
     Dosage: 1 IMPLANT IN THE LEFT ARM, UNK
     Route: 059
     Dates: start: 20161201, end: 20170125

REACTIONS (3)
  - Tooth disorder [Not Recovered/Not Resolved]
  - Device deployment issue [Unknown]
  - Implant site rash [Recovered/Resolved]

NARRATIVE: CASE EVENT DATE: 20170113
